FAERS Safety Report 7470051-1 (Version None)
Quarter: 2011Q2

REPORT INFORMATION
  Report Type: 
  Country: None (occurrence: None)
  Receive Date: 20110510
  Receipt Date: 20110509
  Transmission Date: 20111010
  Serious: Yes (Other)
  Sender: FDA-Public Use
  Company Number: US-PFIZER INC-2011099264

PATIENT
  Sex: Female

DRUGS (9)
  1. PROCARDIA [Concomitant]
     Indication: HYPERTENSION
     Dosage: 60 MG, 1X/DAY
     Route: 048
  2. XANAX [Concomitant]
     Indication: AGORAPHOBIA
     Dosage: 1.5 MG, 2X/DAY
     Route: 048
     Dates: start: 20050101
  3. MONTELUKAST SODIUM [Concomitant]
     Indication: ASTHMA
     Dosage: 10 MG, 1X/DAY
     Route: 048
  4. NEBIVOLOL [Concomitant]
     Indication: HYPERTENSION
     Dosage: 5 MG, 1X/DAY
     Route: 048
  5. PREVACID [Concomitant]
     Indication: GASTROOESOPHAGEAL REFLUX DISEASE
     Dosage: 16 MG, 1X/DAY
     Route: 048
  6. AVALIDE [Concomitant]
     Indication: HYPERTENSION
     Dosage: 300/25
     Route: 048
  7. EFFEXOR XR [Suspect]
     Indication: AGORAPHOBIA
  8. XANAX [Concomitant]
     Indication: PANIC ATTACK
  9. EFFEXOR XR [Suspect]
     Indication: PANIC ATTACK
     Dosage: 225 MG, 1X/DAY
     Route: 048
     Dates: start: 20050101

REACTIONS (5)
  - RHEUMATOID ARTHRITIS [None]
  - KNEE ARTHROPLASTY [None]
  - INTERVERTEBRAL DISC PROTRUSION [None]
  - TINNITUS [None]
  - JUGULAR VEIN DISTENSION [None]
